FAERS Safety Report 5615206-3 (Version None)
Quarter: 2008Q1

REPORT INFORMATION
  Report Type: 
  Country: None (occurrence: None)
  Receive Date: 20080204
  Receipt Date: 20080204
  Transmission Date: 20080703
  Serious: Yes (Life-Threatening, Hospitalization)
  Sender: FDA-Public Use
  Company Number: None

PATIENT
  Age: 68 Year
  Sex: Male

DRUGS (2)
  1. MIDAZOLAM HCL [Suspect]
     Indication: SURGERY
     Dosage: 2MG ONCE IV
     Route: 042
     Dates: start: 20071220, end: 20071220
  2. LORAZEPAM [Suspect]
     Indication: SURGERY
     Dosage: 0.5MG ONCE PO
     Route: 048
     Dates: start: 20071220, end: 20071220

REACTIONS (4)
  - BLOOD PRESSURE DECREASED [None]
  - OXYGEN SATURATION DECREASED [None]
  - RESPIRATORY DEPRESSION [None]
  - UNRESPONSIVE TO STIMULI [None]
